FAERS Safety Report 21808438 (Version 1)
Quarter: 2023Q1

REPORT INFORMATION
  Report Type: Spontaneous
  Country: US (occurrence: US)
  Receive Date: 20230103
  Receipt Date: 20230103
  Transmission Date: 20230418
  Serious: No
  Sender: FDA-Public Use
  Company Number: US-SA-SAC20221230000825

PATIENT
  Age: 26 Year
  Sex: Male

DRUGS (2)
  1. DUPIXENT [Suspect]
     Active Substance: DUPILUMAB
     Indication: Dermatitis atopic
     Dosage: 300 MG, QOW
     Route: 058
     Dates: start: 20221025
  2. METHYLFOLAT [Concomitant]
     Dosage: UNK

REACTIONS (4)
  - Sleep disorder [Unknown]
  - Impaired quality of life [Unknown]
  - Dermatitis atopic [Unknown]
  - Drug ineffective [Unknown]

NARRATIVE: CASE EVENT DATE: 20220101
